FAERS Safety Report 9162641 (Version 1)
Quarter: 2013Q1

REPORT INFORMATION
  Report Type: Spontaneous
  Country: US (occurrence: US)
  Receive Date: 20130314
  Receipt Date: 20130314
  Transmission Date: 20140127
  Serious: No
  Sender: FDA-Public Use
  Company Number: US-009507513-1303USA006468

PATIENT
  Sex: Female

DRUGS (1)
  1. CLARITIN [Suspect]

REACTIONS (3)
  - Insomnia [Unknown]
  - Oropharyngeal pain [Unknown]
  - Hypersensitivity [Unknown]
